FAERS Safety Report 5031729-2 (Version None)
Quarter: 2006Q2

REPORT INFORMATION
  Report Type: 
  Country: None (occurrence: None)
  Receive Date: 20060616
  Receipt Date: 20060605
  Transmission Date: 20061013
  Serious: Yes (Other)
  Sender: FDA-Public Use
  Company Number: S06-USA-02274-01

PATIENT
  Age: 78 Year
  Sex: Male

DRUGS (17)
  1. NAMENDA [Suspect]
     Indication: DEMENTIA
     Dosage: 5 MG QD PO
     Route: 048
     Dates: start: 20060505, end: 20060511
  2. NAMENDA [Suspect]
     Indication: DEMENTIA
     Dosage: 5 MG BID PO
     Route: 048
     Dates: start: 20060512, end: 20060518
  3. NAMENDA [Concomitant]
     Indication: DEMENTIA
     Dosage: 15 MG QD PO
     Route: 048
     Dates: start: 20060519, end: 20060525
  4. NAMENDA [Suspect]
     Indication: DEMENTIA
     Dosage: 10 MG BID PO
     Route: 048
     Dates: start: 20060526
  5. ARICEPT [Concomitant]
  6. LASIX [Concomitant]
  7. TOPROL XL (METOPROLOL SUCCINATE)` [Concomitant]
  8. ALTACE [Concomitant]
  9. DIGOXIN [Concomitant]
  10. COUMADIN [Concomitant]
  11. SYNTHROID [Concomitant]
  12. XALATAN [Concomitant]
  13. POTASSIUM CHLORIDE [Concomitant]
  14. FOLIC ACID [Concomitant]
  15. VITAMIN B COMPLEX CAP [Concomitant]
  16. ASPIRIN [Concomitant]
  17. THERAPEUTIC VITAMINS (NOS) [Concomitant]

REACTIONS (5)
  - ASTHENIA [None]
  - CONDITION AGGRAVATED [None]
  - DEMENTIA [None]
  - DRUG INEFFECTIVE [None]
  - LETHARGY [None]
